FAERS Safety Report 19226287 (Version 3)
Quarter: 2021Q4

REPORT INFORMATION
  Report Type: Report from Study
  Country: US (occurrence: US)
  Receive Date: 20210506
  Receipt Date: 20211111
  Transmission Date: 20220303
  Serious: No
  Sender: FDA-Public Use
  Company Number: US-AURINIA PHARMACEUTICALS INC.-AUR-000067

PATIENT
  Sex: Male

DRUGS (3)
  1. LUPKYNIS [Suspect]
     Active Substance: VOCLOSPORIN
     Indication: Lupus nephritis
     Dosage: 23.7 MILLIGRAM, BID
     Route: 048
     Dates: start: 20210318
  2. LUPKYNIS [Suspect]
     Active Substance: VOCLOSPORIN
     Dosage: 23.7 MILLIGRAM, BID
     Dates: start: 20210323
  3. LUPKYNIS [Suspect]
     Active Substance: VOCLOSPORIN
     Dosage: 31.6 MILLIGRAM, QD ONCE EACH MORNING
     Route: 048

REACTIONS (2)
  - Headache [Not Recovered/Not Resolved]
  - Glomerular filtration rate decreased [Unknown]
